FAERS Safety Report 4970144-4 (Version None)
Quarter: 2006Q2

REPORT INFORMATION
  Report Type: 
  Country: None (occurrence: None)
  Receive Date: 20060406
  Receipt Date: 20060324
  Transmission Date: 20061013
  Serious: Yes (Other)
  Sender: FDA-Public Use
  Company Number: 2006042094

PATIENT
  Sex: Male
  Weight: 70.7611 kg

DRUGS (3)
  1. VIAGRA [Suspect]
     Indication: ERECTILE DYSFUNCTION
     Dosage: (50 MG)
  2. ATIVAN [Concomitant]
  3. ALBUTEROL [Concomitant]

REACTIONS (5)
  - APNOEA [None]
  - ASTHMA [None]
  - CONVULSION [None]
  - CYANOPSIA [None]
  - PALPITATIONS [None]
